FAERS Safety Report 10499025 (Version 2)
Quarter: 2014Q4

REPORT INFORMATION
  Report Type: Report from Study
  Country: US (occurrence: US)
  Receive Date: 20141006
  Receipt Date: 20141006
  Transmission Date: 20150528
  Serious: Yes (Other)
  Sender: FDA-Public Use
  Company Number: US-GILEAD-2014-0114791

PATIENT
  Age: 53 Year
  Sex: Female

DRUGS (1)
  1. SOFOSBUVIR [Suspect]
     Active Substance: SOFOSBUVIR
     Indication: CHRONIC HEPATITIS C
     Dosage: 400 MG, UNK
     Route: 065

REACTIONS (5)
  - Skin ulcer [Unknown]
  - Nausea [Unknown]
  - Hypoaesthesia [Unknown]
  - Muscle spasms [Unknown]
  - Delirium [Unknown]
